FAERS Safety Report 24438634 (Version 1)
Quarter: 2024Q4

REPORT INFORMATION
  Report Type: Spontaneous
  Country: US (occurrence: None)
  Receive Date: 20241014
  Receipt Date: 20241014
  Transmission Date: 20250114
  Serious: No
  Sender: Public
  Company Number: None

PATIENT
  Age: 50 Year
  Sex: Female
  Weight: 68.4 kg

DRUGS (21)
  1. EMGALITY [Suspect]
     Active Substance: GALCANEZUMAB-GNLM
     Indication: Migraine
     Dosage: OTHER QUANTITY : 1 INJECTION(S);?OTHER FREQUENCY : Q MONTH;?
     Route: 030
     Dates: start: 20240325, end: 20241001
  2. PROZAC [Concomitant]
     Active Substance: FLUOXETINE HYDROCHLORIDE
  3. WELLBUTRIN [Concomitant]
  4. RITALIN [Concomitant]
  5. AZSTARYS [Concomitant]
     Active Substance: DEXMETHYLPHENIDATE HYDROCHLORIDE\SERDEXMETHYLPHENIDATE CHLORIDE
  6. LISINOPRIL [Concomitant]
  7. GABAPENTIN [Concomitant]
  8. BACLOFEN [Concomitant]
  9. SEROQUEL [Concomitant]
  10. Meclizine [Concomitant]
  11. Ubrelvy [Concomitant]
  12. HYDROXIZINE [Concomitant]
  13. MONTELUKAST [Concomitant]
     Active Substance: MONTELUKAST
  14. ALBUTEROL [Concomitant]
     Active Substance: ALBUTEROL
  15. Levocertrizine [Concomitant]
  16. ALEVE [Concomitant]
  17. TYLENOL [Concomitant]
  18. BENADRYL [Concomitant]
     Active Substance: DIPHENHYDRAMINE HYDROCHLORIDE
  19. Smarty pants multi vitamin [Concomitant]
  20. cbd [Concomitant]
  21. align probiotics [Concomitant]

REACTIONS (6)
  - Injection site rash [None]
  - Injection site swelling [None]
  - Injection site pruritus [None]
  - Injection site bruising [None]
  - Neuralgia [None]
  - Paraesthesia [None]

NARRATIVE: CASE EVENT DATE: 20240904
